FAERS Safety Report 6404355-8 (Version None)
Quarter: 2009Q4

REPORT INFORMATION
  Report Type: 
  Country: None (occurrence: None)
  Receive Date: 20091016
  Receipt Date: 20091012
  Transmission Date: 20100525
  Serious: Yes (Disabling)
  Sender: FDA-Public Use
  Company Number: FR-B.I. PHARMACEUTICALS,INC./RIDGEFIELD-2009-FF-00603FF

PATIENT
  Sex: Female
  Weight: 45 kg

DRUGS (5)
  1. SIFROL [Suspect]
     Indication: PARKINSON'S DISEASE
     Dosage: 1.98 MG
     Route: 048
     Dates: start: 20080901
  2. MANTADIX [Suspect]
     Indication: PARKINSON'S DISEASE
     Dosage: 100 MG
     Route: 048
     Dates: start: 20090501
  3. STALEVO 100 [Concomitant]
     Dosage: 125/200 MG
     Route: 048
  4. SINEMET [Concomitant]
     Dosage: 50 MG
     Route: 048
  5. SINEMET CR [Concomitant]
     Dosage: 50 MG
     Route: 048

REACTIONS (4)
  - ASTHENOPIA [None]
  - CONSTIPATION [None]
  - INSOMNIA [None]
  - VISUAL IMPAIRMENT [None]
